FAERS Safety Report 18129316 (Version 2)
Quarter: 2020Q3

REPORT INFORMATION
  Report Type: Spontaneous
  Country: US (occurrence: US)
  Receive Date: 20200810
  Receipt Date: 20200914
  Transmission Date: 20201103
  Serious: Yes (Hospitalization, Other)
  Sender: FDA-Public Use
  Company Number: US-B.I. PHARMACEUTICALS,INC./RIDGEFIELD-2020-US-040038

PATIENT
  Age: 55 Year

DRUGS (4)
  1. JARDIANCE [Suspect]
     Active Substance: EMPAGLIFLOZIN
     Indication: TYPE 2 DIABETES MELLITUS
     Dosage: 25 MG BY MOUTH DAILY
     Route: 048
  2. METFORMIN [Concomitant]
     Active Substance: METFORMIN HYDROCHLORIDE
     Indication: TYPE 2 DIABETES MELLITUS
  3. INSULIN [Concomitant]
     Active Substance: INSULIN NOS
     Indication: TYPE 2 DIABETES MELLITUS
     Dosage: SUBCUTANEOUS INJECTION
  4. SYNJARDY XR [Suspect]
     Active Substance: EMPAGLIFLOZIN\METFORMIN HYDROCHLORIDE
     Indication: TYPE 2 DIABETES MELLITUS
     Dosage: 12.5/1000 MG BY MOUTH TWICE DAILY
     Route: 048
     Dates: end: 201908

REACTIONS (3)
  - Perineal cellulitis [Recovered/Resolved]
  - Sepsis [Recovered/Resolved]
  - Vulvovaginal pruritus [Recovered/Resolved]

NARRATIVE: CASE EVENT DATE: 201908
